FAERS Safety Report 16681110 (Version 1)
Quarter: 2019Q3

REPORT INFORMATION
  Report Type: Report from Study
  Country: US (occurrence: US)
  Receive Date: 20190808
  Receipt Date: 20190808
  Transmission Date: 20191004
  Serious: Yes (Death, Hospitalization)
  Sender: FDA-Public Use
  Company Number: US-KARYOPHARM THERAPEUTICS, INC.-2018KPT000396

PATIENT
  Age: 50 Year
  Sex: Male
  Weight: 73 kg

DRUGS (24)
  1. INDERAL XL [Concomitant]
     Active Substance: PROPRANOLOL HYDROCHLORIDE
     Dosage: 10 MG, TID
     Route: 048
  2. ASPIRIN. [Concomitant]
     Active Substance: ASPIRIN
  3. NEURONTIN [Concomitant]
     Active Substance: GABAPENTIN
     Dosage: 300, TID
     Route: 048
  4. TYLENOL EXTRA STRENGTH [Concomitant]
     Active Substance: ACETAMINOPHEN
     Dosage: 1000 MG, Q8H
     Route: 048
  5. SELINEXOR [Suspect]
     Active Substance: SELINEXOR
     Indication: THYMOMA
     Dosage: 60 MG, 2X/WEEK/ 3 WEEKS
     Route: 048
     Dates: start: 20180524, end: 20180531
  6. SODIUM CHLORIDE. [Concomitant]
     Active Substance: SODIUM CHLORIDE
     Dosage: 2 G, TID
     Route: 048
  7. CEPHULAC [Concomitant]
     Active Substance: LACTULOSE
     Dosage: 20 G/ 30 ML, QD
     Route: 048
  8. ASPIRIN. [Concomitant]
     Active Substance: ASPIRIN
     Dosage: 81 MG, QD
     Route: 048
  9. PEPCID [Concomitant]
     Active Substance: FAMOTIDINE
     Dosage: 20 MG, QD
     Route: 048
  10. OXYCONTIN [Concomitant]
     Active Substance: OXYCODONE HYDROCHLORIDE
     Dosage: 50 MG, TID
     Route: 048
  11. CEPHULAC [Concomitant]
     Active Substance: LACTULOSE
  12. SELINEXOR [Suspect]
     Active Substance: SELINEXOR
     Dosage: 40 MG, 2X/WEEK
     Route: 048
     Dates: start: 20180607
  13. DULOXETINE HCL [Concomitant]
     Active Substance: DULOXETINE HYDROCHLORIDE
     Dosage: 60 MG, QD (2 TABLETS)
     Route: 048
  14. NEURONTIN [Concomitant]
     Active Substance: GABAPENTIN
     Dosage: 100 MG, TID
     Route: 048
  15. PREDNISONE WESTFIELD [Concomitant]
     Indication: RASH
     Dosage: 5 MG, QD
     Route: 048
     Dates: start: 20180705, end: 20180713
  16. CELEBREX [Concomitant]
     Active Substance: CELECOXIB
  17. DIPHENHYDRAMINE HYDROCHLORIDE W/LIDOCAINE/NYSTATIN [Concomitant]
     Dosage: 10 ML, BID
     Route: 048
  18. PREDNISONE WESTFIELD [Concomitant]
     Dosage: 60 UNK
  19. SENOKOT [Concomitant]
     Active Substance: SENNOSIDES
     Dosage: 1 TABLET, QD
     Route: 048
  20. FOLVITE [Concomitant]
     Active Substance: FOLIC ACID
     Dosage: 1 MG, QD
     Route: 048
  21. BENADRYL [Concomitant]
     Active Substance: DIPHENHYDRAMINE HYDROCHLORIDE
     Dosage: 25 MG, QD
     Route: 048
  22. ROXICODONE [Concomitant]
     Active Substance: OXYCODONE HYDROCHLORIDE
     Dosage: 10 MG, Q6H
     Route: 048
  23. CELEBREX [Concomitant]
     Active Substance: CELECOXIB
     Dosage: 200 MG, BID
     Route: 048
  24. MIRALAX [Concomitant]
     Active Substance: POLYETHYLENE GLYCOL 3350
     Dosage: 17 G, QD
     Route: 048

REACTIONS (1)
  - Pneumonitis [Fatal]

NARRATIVE: CASE EVENT DATE: 20180718
